FAERS Safety Report 5460182-X (Version None)
Quarter: 2007Q3

REPORT INFORMATION
  Report Type: 
  Country: None (occurrence: None)
  Receive Date: 20070919
  Receipt Date: 20070525
  Transmission Date: 20080115
  Serious: No
  Sender: FDA-Public Use
  Company Number: US-ASTRAZENECA-2007UW12987

PATIENT
  Age: 52 Year
  Sex: Male
  Weight: 90.7 kg

DRUGS (9)
  1. SEROQUEL [Suspect]
     Indication: DEPRESSION
     Route: 048
     Dates: start: 20050101
  2. SEROQUEL [Suspect]
     Indication: ANXIETY
     Route: 048
     Dates: start: 20050101
  3. SEROQUEL [Suspect]
     Route: 048
  4. SEROQUEL [Suspect]
     Route: 048
  5. SEROQUEL [Suspect]
     Route: 048
     Dates: end: 20070401
  6. SEROQUEL [Suspect]
     Route: 048
     Dates: end: 20070401
  7. ROZEREM [Concomitant]
  8. EFFEXOR [Concomitant]
  9. VYTORIN [Concomitant]

REACTIONS (8)
  - DRY MOUTH [None]
  - HANGOVER [None]
  - INSOMNIA [None]
  - NASAL CONGESTION [None]
  - SINUS DISORDER [None]
  - SWOLLEN TONGUE [None]
  - WEIGHT DECREASED [None]
  - WEIGHT INCREASED [None]
